FAERS Safety Report 12982525 (Version 1)
Quarter: 2016Q4

REPORT INFORMATION
  Report Type: Spontaneous
  Country: BR (occurrence: BR)
  Receive Date: 20161129
  Receipt Date: 20161129
  Transmission Date: 20170207
  Serious: Yes (Other)
  Sender: FDA-Public Use
  Company Number: BR-PFIZER INC-2016546787

PATIENT
  Sex: Female
  Weight: 64 kg

DRUGS (3)
  1. PHARMATON /00124801/ [Concomitant]
     Indication: VITAMIN SUPPLEMENTATION
     Dosage: 1 TABLET (UNSPECIFIED DOSE), DAILY
     Route: 048
     Dates: start: 2013
  2. BENICAR [Concomitant]
     Active Substance: OLMESARTAN MEDOXOMIL
     Indication: BLOOD PRESSURE INCREASED
     Dosage: 1 TABLET (20MG), DAILY
     Route: 048
     Dates: start: 2010
  3. LIPITOR [Suspect]
     Active Substance: ATORVASTATIN CALCIUM
     Indication: BLOOD CHOLESTEROL INCREASED
     Dosage: ONE TABLET (20 MG), DAILY
     Route: 048
     Dates: start: 2012

REACTIONS (3)
  - Infection [Recovered/Resolved]
  - Transplant rejection [Unknown]
  - Visual impairment [Unknown]
